FAERS Safety Report 4613626-7 (Version None)
Quarter: 2005Q1

REPORT INFORMATION
  Report Type: 
  Country: None (occurrence: None)
  Receive Date: 20050315
  Receipt Date: 20050310
  Transmission Date: 20050727
  Serious: No
  Sender: FDA-Public Use
  Company Number: 6627

PATIENT
  Age: 32 Year
  Sex: Male

DRUGS (1)
  1. ACYCLOVIR [Suspect]
     Indication: HERPES SIMPLEX
     Dosage: 800 MG PO
     Route: 048
     Dates: start: 20000413, end: 20000418

REACTIONS (2)
  - AGGRESSION [None]
  - AMNESIA [None]
